FAERS Safety Report 17836087 (Version 1)
Quarter: 2020Q2

REPORT INFORMATION
  Report Type: Report from Study
  Country: US (occurrence: US)
  Receive Date: 20200528
  Receipt Date: 20200528
  Transmission Date: 20200714
  Serious: No
  Sender: FDA-Public Use
  Company Number: NVSC2020US147277

PATIENT
  Age: 23 Year
  Sex: Female

DRUGS (2)
  1. GILENYA [Suspect]
     Active Substance: FINGOLIMOD HYDROCHLORIDE
     Indication: PRODUCT USED FOR UNKNOWN INDICATION
     Dosage: 0.5 MG, QD
     Route: 048
     Dates: start: 20200206
  2. MARIJUANA [Concomitant]
     Active Substance: CANNABIS SATIVA SUBSP. INDICA TOP
     Indication: PRODUCT USED FOR UNKNOWN INDICATION
     Route: 065

REACTIONS (9)
  - Insomnia [Unknown]
  - Anxiety [Unknown]
  - Mood swings [Unknown]
  - Hot flush [Unknown]
  - Nausea [Unknown]
  - Tremor [Unknown]
  - Headache [Unknown]
  - Metrorrhagia [Unknown]
  - Night sweats [Unknown]

NARRATIVE: CASE EVENT DATE: 202005
